FAERS Safety Report 4918938-5 (Version None)
Quarter: 2006Q1

REPORT INFORMATION
  Report Type: 
  Country: None (occurrence: None)
  Receive Date: 20060222
  Receipt Date: 20060203
  Transmission Date: 20060701
  Serious: Yes (Other)
  Sender: FDA-Public Use
  Company Number: US-GLAXOSMITHKLINE-A0592285A

PATIENT
  Age: 70 Year
  Sex: Female
  Weight: 70 kg

DRUGS (8)
  1. REQUIP [Suspect]
     Indication: RESTLESS LEGS SYNDROME
     Dosage: 1MG PER DAY
     Route: 048
     Dates: start: 20051114
  2. LIPITOR [Concomitant]
     Dosage: 20MG PER DAY
     Route: 048
  3. CARDIZEM LA [Concomitant]
     Dosage: 240MG PER DAY
     Route: 048
  4. SYNTHROID [Concomitant]
     Dosage: 25MG PER DAY
     Route: 048
  5. PERSANTINE [Concomitant]
     Dosage: 25MG THREE TIMES PER DAY
     Route: 048
  6. VISTARIL [Concomitant]
     Dosage: 25MG AT NIGHT
     Route: 048
  7. HALCION [Concomitant]
     Dosage: .25MG AT NIGHT
     Route: 048
  8. LANOXIN [Concomitant]
     Route: 048

REACTIONS (3)
  - GASTROENTERITIS VIRAL [None]
  - MEDICATION ERROR [None]
  - NAUSEA [None]
